FAERS Safety Report 24097142 (Version 2)
Quarter: 2024Q3

REPORT INFORMATION
  Report Type: Spontaneous
  Country: US (occurrence: US)
  Receive Date: 20240716
  Receipt Date: 20240821
  Transmission Date: 20241017
  Serious: No
  Sender: PFIZER
  Company Number: US-PFIZER INC-202400213890

PATIENT
  Age: 74 Year
  Sex: Female

DRUGS (11)
  1. IBRANCE [Suspect]
     Active Substance: PALBOCICLIB
     Dosage: IBRANCE 125MG FOR 21 DAYS FOLLOWED BY 7 DAYS OFF
     Dates: start: 20240521
  2. OXYBUTYNIN [Concomitant]
     Active Substance: OXYBUTYNIN\OXYBUTYNIN CHLORIDE
  3. OLMESARTAN [Concomitant]
     Active Substance: OLMESARTAN
  4. NOVOLOG [Concomitant]
     Active Substance: INSULIN ASPART
     Dosage: 100 UNK
  5. ATORVASTATIN [Concomitant]
     Active Substance: ATORVASTATIN
  6. GVOKE [Concomitant]
     Active Substance: GLUCAGON
  7. MUPIROCIN [Concomitant]
     Active Substance: MUPIROCIN
  8. LEVOTHYROXINE [Concomitant]
     Active Substance: LEVOTHYROXINE\LEVOTHYROXINE SODIUM
  9. TRESIBA [Concomitant]
     Active Substance: INSULIN DEGLUDEC
  10. METRONIDAZOLE [Concomitant]
     Active Substance: METRONIDAZOLE
  11. BENZONATATE [Concomitant]
     Active Substance: BENZONATATE

REACTIONS (2)
  - Stomatitis [Unknown]
  - Constipation [Unknown]
